FAERS Safety Report 9265778 (Version 2)
Quarter: 2013Q4

REPORT INFORMATION
  Report Type: Spontaneous
  Country: IT (occurrence: IT)
  Receive Date: 20130501
  Receipt Date: 20131018
  Transmission Date: 20140711
  Serious: Yes (Hospitalization)
  Sender: FDA-Public Use
  Company Number: IT-TEVA-400162ISR

PATIENT
  Age: 80 Year
  Sex: Male

DRUGS (7)
  1. ATENOLOL [Suspect]
     Dates: start: 1997, end: 20130316
  2. ATENOLOL [Suspect]
     Dosage: 25 MILLIGRAM DAILY;
     Route: 048
     Dates: start: 20130323, end: 20130323
  3. KANRENOL [Concomitant]
     Dosage: 200MG
  4. LASIX [Concomitant]
     Dosage: 25MG
  5. TRIATEC [Concomitant]
     Dosage: 2,5MG
  6. VENITRIN [Concomitant]
     Dosage: 5MG
  7. SINTROM [Concomitant]
     Dosage: 4MG

REACTIONS (5)
  - Palpitations [Recovered/Resolved]
  - Asthenia [Recovered/Resolved]
  - Hypotension [Recovered/Resolved]
  - Bradycardia [Recovered/Resolved]
  - Intentional drug misuse [Recovered/Resolved]
